FAERS Safety Report 23772571 (Version 1)
Quarter: 2024Q2

REPORT INFORMATION
  Report Type: Spontaneous
  Country: IT (occurrence: IT)
  Receive Date: 20240423
  Receipt Date: 20240423
  Transmission Date: 20240716
  Serious: Yes (Hospitalization)
  Sender: FDA-Public Use
  Company Number: None

PATIENT
  Age: 23 Year
  Sex: Female

DRUGS (5)
  1. QUETIAPINE [Suspect]
     Active Substance: QUETIAPINE
     Indication: Intentional self-injury
     Dosage: QUETIAPINE: 22 TABLETS OF 100 MG EACH
  2. DELORAZEPAM [Suspect]
     Active Substance: DELORAZEPAM
     Indication: Intentional self-injury
     Dosage: EN: 6 CAPSULES OF 1 MG EACH
  3. BREXPIPRAZOLE [Concomitant]
     Active Substance: BREXPIPRAZOLE
  4. CITALOPRAM [Concomitant]
     Active Substance: CITALOPRAM\CITALOPRAM HYDROBROMIDE
  5. TALOFEN [Concomitant]
     Active Substance: PROMAZINE HYDROCHLORIDE

REACTIONS (2)
  - Substance abuse [Unknown]
  - Sopor [Unknown]

NARRATIVE: CASE EVENT DATE: 20231120
